FAERS Safety Report 5453107-4 (Version None)
Quarter: 2007Q3

REPORT INFORMATION
  Report Type: 
  Country: None (occurrence: None)
  Receive Date: 20070914
  Receipt Date: 20070905
  Transmission Date: 20080115
  Serious: Yes (Other)
  Sender: FDA-Public Use
  Company Number: US-PFIZER INC-2007066723

PATIENT
  Sex: Female
  Weight: 83.9 kg

DRUGS (12)
  1. CHANTIX [Suspect]
     Indication: SMOKING CESSATION THERAPY
     Route: 048
     Dates: start: 20070514, end: 20070807
  2. CHANTIX [Suspect]
     Indication: NICOTINE DEPENDENCE
  3. ATARAX [Suspect]
  4. PREDNISONE TAB [Suspect]
  5. HYZAAR [Concomitant]
     Route: 048
  6. VYTORIN [Concomitant]
     Indication: BLOOD CHOLESTEROL INCREASED
     Route: 048
  7. METFORMIN HCL [Concomitant]
  8. PRILOSEC [Concomitant]
  9. REGLAN [Concomitant]
  10. MOBIC [Concomitant]
     Indication: BACK PAIN
  11. CLARITIN [Concomitant]
  12. GLUCOPHAGE [Concomitant]

REACTIONS (7)
  - DEAFNESS [None]
  - DIZZINESS [None]
  - DRUG INEFFECTIVE [None]
  - GAIT DISTURBANCE [None]
  - HYPERHIDROSIS [None]
  - TINNITUS [None]
  - VERTIGO [None]
